FAERS Safety Report 5013759-X (Version None)
Quarter: 2006Q2

REPORT INFORMATION
  Report Type: 
  Country: None (occurrence: None)
  Receive Date: 20060530
  Receipt Date: 19970501
  Transmission Date: 20061013
  Serious: Yes (Hospitalization)
  Sender: FDA-Public Use
  Company Number: TOS-000307

PATIENT
  Age: 35 Year
  Sex: Female
  Weight: 52.4 kg

DRUGS (4)
  1. BEXXAR [Suspect]
     Indication: NON-HODGKIN'S LYMPHOMA
     Route: 042
     Dates: start: 19960815, end: 19960815
  2. IODINE I 131 TOSITUMOMAB [Suspect]
     Indication: NON-HODGKIN'S LYMPHOMA
     Route: 042
     Dates: start: 19960815, end: 19960815
  3. BEXXAR [Suspect]
     Route: 042
     Dates: start: 19960822, end: 19960822
  4. IODINE I 131 TOSITUMOMAB [Suspect]
     Route: 042
     Dates: start: 19960822, end: 19960822

REACTIONS (2)
  - COLITIS ULCERATIVE [None]
  - FEBRILE NEUTROPENIA [None]
